FAERS Safety Report 6483630-5 (Version None)
Quarter: 2009Q4

REPORT INFORMATION
  Report Type: 
  Country: None (occurrence: None)
  Receive Date: 20091209
  Receipt Date: 20091127
  Transmission Date: 20100525
  Serious: Yes (Hospitalization)
  Sender: FDA-Public Use
  Company Number: PHHY2009ES52311

PATIENT
  Age: 76 Year
  Sex: Male

DRUGS (5)
  1. STALEVO 100 [Suspect]
     Indication: MULTIPLE SYSTEM ATROPHY
     Dosage: UNK
     Route: 048
     Dates: start: 20090301, end: 20090402
  2. SINEMET CR [Suspect]
     Indication: MULTIPLE SYSTEM ATROPHY
     Dosage: UNK
     Route: 048
     Dates: start: 20090403, end: 20090427
  3. OMEPRAZOLE [Concomitant]
     Dosage: 200 MG, QD
     Route: 048
  4. SIMVASTATIN [Concomitant]
     Indication: HYPERLIPIDAEMIA
     Dosage: 20 MG DAILY
     Route: 048
  5. HEMOVAS [Concomitant]
     Dosage: 600 MG DAILY
     Route: 048

REACTIONS (1)
  - PEMPHIGOID [None]
